FAERS Safety Report 4370995-3 (Version None)
Quarter: 2004Q2

REPORT INFORMATION
  Report Type: 
  Country: None (occurrence: None)
  Receive Date: 20040601
  Receipt Date: 20040520
  Transmission Date: 20050107
  Serious: Yes (Death)
  Sender: FDA-Public Use
  Company Number: 206219

PATIENT
  Age: 73 Year
  Sex: Male
  Weight: 47.5 kg

DRUGS (2)
  1. RITUXIMAB (RITUXIMAB) CONC FOR SOLUTION FOR INFUSION [Suspect]
     Indication: EXTRANODAL MARGINAL ZONE B-CELL LYMPHOMA (MALT TYPE)
     Dosage: INTRAVENOUS
     Route: 042
     Dates: start: 20040308, end: 20040329
  2. HYPERALIMENTATION (HYPERALIMENTATION) [Suspect]

REACTIONS (16)
  - BLOOD ALKALINE PHOSPHATASE INCREASED [None]
  - BLOOD SODIUM INCREASED [None]
  - CANDIDIASIS [None]
  - CARDIAC ARREST [None]
  - CATHETER RELATED INFECTION [None]
  - COMA [None]
  - DEPRESSED LEVEL OF CONSCIOUSNESS [None]
  - DIABETES MELLITUS INADEQUATE CONTROL [None]
  - GLUCOSE TOLERANCE IMPAIRED [None]
  - HEARING IMPAIRED [None]
  - HYPERURICAEMIA [None]
  - HYPOCALCAEMIA [None]
  - RENAL FAILURE [None]
  - RESPIRATORY ARREST [None]
  - SHOCK [None]
  - SPEECH DISORDER [None]
